FAERS Safety Report 4713204-5 (Version None)
Quarter: 2005Q3

REPORT INFORMATION
  Report Type: 
  Country: None (occurrence: None)
  Receive Date: 20050713
  Receipt Date: 20040503
  Transmission Date: 20060218
  Serious: Yes (Life-Threatening, Hospitalization)
  Sender: FDA-Public Use
  Company Number: DE-MERCK-0405DEU00009

PATIENT
  Age: 73 Year
  Sex: Female
  Weight: 92 kg

DRUGS (1)
  1. VIOXX [Suspect]
     Indication: OSTEOCHONDROSIS
     Route: 048
     Dates: start: 20020501, end: 20040401

REACTIONS (2)
  - ATRIAL FIBRILLATION [None]
  - CARDIAC FAILURE [None]
